FAERS Safety Report 5712481-1 (Version None)
Quarter: 2008Q2

REPORT INFORMATION
  Report Type: 
  Country: None (occurrence: None)
  Receive Date: 20080422
  Receipt Date: 20080417
  Transmission Date: 20081010
  Serious: Yes (Life-Threatening, Hospitalization)
  Sender: FDA-Public Use
  Company Number: FR-RB-009105-08

PATIENT
  Age: 43 Year
  Sex: Female

DRUGS (8)
  1. SUBUTEX [Suspect]
     Indication: DRUG THERAPY
     Route: 048
     Dates: end: 20071227
  2. FLUVOXAMINE MALEATE [Suspect]
     Route: 065
  3. DEPAKOTE [Suspect]
     Route: 048
  4. RIVOTRIL [Concomitant]
     Indication: DRUG USE FOR UNKNOWN INDICATION
     Dosage: DOSAGE AND FREQUENCY UNKNOWN
     Route: 065
     Dates: start: 20080104
  5. LOXAPINE HCL [Suspect]
     Indication: DRUG USE FOR UNKNOWN INDICATION
     Route: 048
     Dates: start: 20071231
  6. ZYPREXA [Suspect]
     Route: 048
     Dates: start: 20071130, end: 20080104
  7. ZYPREXA [Suspect]
     Route: 048
     Dates: start: 20071127, end: 20071129
  8. TERCIAN [Suspect]
     Indication: DRUG USE FOR UNKNOWN INDICATION
     Dosage: DOSAGE AND FREQUENCY UNKNOWN
     Route: 048
     Dates: start: 20071227, end: 20071231

REACTIONS (3)
  - BORDERLINE PERSONALITY DISORDER [None]
  - DIABETES MELLITUS [None]
  - INCORRECT ROUTE OF DRUG ADMINISTRATION [None]
